APPROVED DRUG PRODUCT: METHYLPHENIDATE HYDROCHLORIDE
Active Ingredient: METHYLPHENIDATE HYDROCHLORIDE
Strength: 72MG
Dosage Form/Route: TABLET, EXTENDED RELEASE;ORAL
Application: A217229 | Product #001 | TE Code: AB
Applicant: SUN PHARMACEUTICAL INDUSTRIES INC
Approved: Aug 25, 2023 | RLD: No | RS: No | Type: RX